FAERS Safety Report 16983142 (Version 2)
Quarter: 2020Q4

REPORT INFORMATION
  Report Type: Spontaneous
  Country: CA (occurrence: CA)
  Receive Date: 20191101
  Receipt Date: 20201013
  Transmission Date: 20210113
  Serious: Yes (Death)
  Sender: FDA-Public Use
  Company Number: CA-ROCHE-2446741

PATIENT
  Age: 75 Year
  Sex: Male
  Weight: 68 kg

DRUGS (11)
  1. ESBRIET [Suspect]
     Active Substance: PIRFENIDONE
     Route: 065
  2. ESBRIET [Suspect]
     Active Substance: PIRFENIDONE
     Route: 048
  3. ACETYLSALICYLIC ACID [Concomitant]
     Active Substance: ASPIRIN
  4. ROSUVASTATIN. [Concomitant]
     Active Substance: ROSUVASTATIN
  5. ALLOPURINOL. [Concomitant]
     Active Substance: ALLOPURINOL
  6. RABEPRAZOLE [Concomitant]
     Active Substance: RABEPRAZOLE
  7. BISOPROLOL [Concomitant]
     Active Substance: BISOPROLOL
  8. METFORMIN [Concomitant]
     Active Substance: METFORMIN HYDROCHLORIDE
  9. MORPHINE SULFATE. [Suspect]
     Active Substance: MORPHINE SULFATE
     Indication: COUGH
     Route: 065
  10. ESBRIET [Suspect]
     Active Substance: PIRFENIDONE
     Indication: IDIOPATHIC PULMONARY FIBROSIS
     Route: 048
  11. OXYGEN. [Concomitant]
     Active Substance: OXYGEN

REACTIONS (14)
  - Gait disturbance [Fatal]
  - Cough [Fatal]
  - Decreased appetite [Fatal]
  - Malaise [Fatal]
  - Constipation [Fatal]
  - Frustration tolerance decreased [Fatal]
  - Asthenia [Fatal]
  - Tooth infection [Fatal]
  - Drug ineffective for unapproved indication [Fatal]
  - Dyspnoea [Fatal]
  - Fatigue [Fatal]
  - Nausea [Fatal]
  - Off label use [Fatal]
  - Pulmonary function test abnormal [Fatal]
